FAERS Safety Report 12356554 (Version 2)
Quarter: 2016Q2

REPORT INFORMATION
  Report Type: Report from Study
  Country: TH (occurrence: TH)
  Receive Date: 20160511
  Receipt Date: 20160530
  Transmission Date: 20160815
  Serious: Yes (Hospitalization, Other)
  Sender: FDA-Public Use
  Company Number: PHHO2010TH16045

PATIENT
  Age: 49 Year
  Sex: Male
  Weight: 75 kg

DRUGS (8)
  1. ALISKIREN [Suspect]
     Active Substance: ALISKIREN
     Indication: CARDIAC FAILURE
     Dosage: 300 MG
     Route: 048
     Dates: start: 20100819
  2. CARVEDILOL. [Concomitant]
     Active Substance: CARVEDILOL
  3. BESTATIN [Concomitant]
  4. FUROSEMIDE. [Concomitant]
     Active Substance: FUROSEMIDE
  5. ENALAPRIL [Suspect]
     Active Substance: ENALAPRIL
     Indication: CARDIAC FAILURE
     Dosage: 10 MG, BID
     Route: 048
     Dates: start: 20100819
  6. LANOXIN [Concomitant]
     Active Substance: DIGOXIN
  7. ACETYLSALICYLIC ACID [Concomitant]
     Active Substance: ASPIRIN
     Route: 065
  8. FOLIAMIN [Concomitant]
     Active Substance: FOLIC ACID

REACTIONS (9)
  - Drug ineffective [Recovered/Resolved]
  - Left ventricular dysfunction [Unknown]
  - Orthopnoea [Unknown]
  - Cardiac failure congestive [Recovered/Resolved]
  - Cardiomegaly [Unknown]
  - Defect conduction intraventricular [Unknown]
  - Concomitant disease progression [Recovering/Resolving]
  - Ventricular tachycardia [Recovering/Resolving]
  - Atrioventricular block first degree [Unknown]

NARRATIVE: CASE EVENT DATE: 20101018
